FAERS Safety Report 25426200 (Version 7)
Quarter: 2025Q3

REPORT INFORMATION
  Report Type: Spontaneous
  Country: EU (occurrence: EU)
  Receive Date: 20250612
  Receipt Date: 20250919
  Transmission Date: 20251021
  Serious: Yes (Hospitalization, Disabling, Other)
  Sender: JOHNSON AND JOHNSON
  Company Number: None

PATIENT
  Age: 81 Year
  Sex: Male

DRUGS (30)
  1. TOPAMAX [Suspect]
     Active Substance: TOPIRAMATE
     Indication: Obesity
     Dosage: 50 MG 2+0+2 (...) TOPIRAMATE REDUCTION WITH A VERY SLOW AND GRADUAL REDUCTION SCHEDULE
     Route: 048
  2. TOPAMAX [Suspect]
     Active Substance: TOPIRAMATE
     Dosage: 2 DOSAGE FORM, TWO TIMES A DAY
     Route: 065
  3. TOPAMAX [Suspect]
     Active Substance: TOPIRAMATE
     Dosage: 50 MILLIGRAMS, 2+0+2 TABLETS
     Route: 048
  4. TOPAMAX [Suspect]
     Active Substance: TOPIRAMATE
     Dosage: 2+0+2 TABLETS
     Route: 048
  5. TOPAMAX [Suspect]
     Active Substance: TOPIRAMATE
     Dosage: 100 MILLIGRAM, 2/DAY
     Route: 048
  6. TOPAMAX [Suspect]
     Active Substance: TOPIRAMATE
     Dosage: TOPIRAMATE REDUCTION WITH A VERY SLOW AND GRADUAL REDUCTION SCHEDULE (...) 75+0+100 (...) REDUCTION
     Route: 048
  7. TOPAMAX [Suspect]
     Active Substance: TOPIRAMATE
     Dosage: 150MG+0+100MG, AND A PSYCHIATRIST AT THE NURSING CENTER HAD STARTED TO REDUCE THE DOSE
     Route: 048
  8. TOPAMAX [Suspect]
     Active Substance: TOPIRAMATE
     Dosage: 50 MG 2+0+2 (...) TOPIRAMATE REDUCTION WITH A VERY SLOW AND GRADUAL REDUCTION SCHEDULE
     Route: 048
  9. TRAZODONE [Suspect]
     Active Substance: TRAZODONE HYDROCHLORIDE
     Indication: Product used for unknown indication
     Dosage: AT DINNER
     Route: 048
  10. TRAZODONE [Suspect]
     Active Substance: TRAZODONE HYDROCHLORIDE
     Dosage: 150 MILLIGRAM, 1/DAY
     Route: 065
  11. ESOMEPRAZOLE [Suspect]
     Active Substance: ESOMEPRAZOLE
     Indication: Gastrooesophageal reflux disease
     Dosage: 40 MILLIGRAMS ONCE A DAY
  12. FOLIC ACID [Suspect]
     Active Substance: FOLIC ACID
     Indication: Product used for unknown indication
     Dosage: FIVE MILLIGRAMS ONE A DAY
  13. LACTULOSE [Suspect]
     Active Substance: LACTULOSE
     Indication: Product used for unknown indication
     Dosage: AT SNACK TIME
  14. LACTULOSE [Suspect]
     Active Substance: LACTULOSE
     Dosage: ONCE A DAY
  15. LEVOTHYROXINE [Suspect]
     Active Substance: LEVOTHYROXINE
     Indication: Hypothyroidism
     Dosage: ON AN EMPTY STOMACH
  16. LEVOTHYROXINE [Suspect]
     Active Substance: LEVOTHYROXINE
     Dosage: 0.1 MILLIGRAMS ONCE A DAY
  17. METAMIZOLE [Suspect]
     Active Substance: METAMIZOLE
     Indication: Pain
     Dosage: 575 MILLIGRAMS TWICE A DAY
  18. METAMIZOLE [Suspect]
     Active Substance: METAMIZOLE
     Dosage: 575 MILLIGRAMS TWICE A DAY
  19. MONTELUKAST [Suspect]
     Active Substance: MONTELUKAST
     Indication: Product used for unknown indication
     Dosage: TEN MILLIGRAMS ONCE A DAY
  20. MONTELUKAST [Suspect]
     Active Substance: MONTELUKAST
     Dosage: TEN MILLIGRAMS ONCE A DAY
  21. ACETAMINOPHEN\TRAMADOL [Suspect]
     Active Substance: ACETAMINOPHEN\TRAMADOL
     Indication: Product used for unknown indication
     Dosage: 75 + 650 MILLIGRAMS THRICE A DAY
  22. RAMIPRIL [Suspect]
     Active Substance: RAMIPRIL
     Indication: Product used for unknown indication
     Dosage: TEN MILLIGRAMS ONCE A DAY
  23. RAMIPRIL [Suspect]
     Active Substance: RAMIPRIL
     Dosage: TEN MILLIGRAMS ONCE A DAY
  24. SIMVASTATIN [Suspect]
     Active Substance: SIMVASTATIN
     Indication: Product used for unknown indication
     Dosage: AT DINNER
  25. SIMVASTATIN [Suspect]
     Active Substance: SIMVASTATIN
     Dosage: 20 MILLIGRAMS ONCE A DAY
  26. TRAZODONE HYDROCHLORIDE [Suspect]
     Active Substance: TRAZODONE HYDROCHLORIDE
     Indication: Product used for unknown indication
     Dosage: AT DINNER
     Route: 048
  27. TRAZODONE HYDROCHLORIDE [Suspect]
     Active Substance: TRAZODONE HYDROCHLORIDE
     Dosage: 2/3 TABLET
     Route: 048
  28. VENLAFAXINE [Suspect]
     Active Substance: VENLAFAXINE HYDROCHLORIDE
     Indication: Depression
     Dosage: AT BREAKFAST
  29. ACETAMINOPHEN\TRAMADOL [Suspect]
     Active Substance: ACETAMINOPHEN\TRAMADOL
     Indication: Product used for unknown indication
  30. ACETAMINOPHEN\TRAMADOL [Suspect]
     Active Substance: ACETAMINOPHEN\TRAMADOL
     Dosage: 75 + 650 MILLIGRAMS THRICE A DAY

REACTIONS (24)
  - Renal failure [Recovered/Resolved]
  - Cachexia [Recovered/Resolved]
  - Acute kidney injury [Recovered/Resolved]
  - Spinal fracture [Recovered/Resolved]
  - Gait inability [Recovered/Resolved]
  - Fall [Recovered/Resolved]
  - Pain [Recovered/Resolved]
  - Apathy [Recovered/Resolved]
  - Nausea [Recovered/Resolved]
  - Vomiting [Recovered/Resolved]
  - Decreased appetite [Recovered/Resolved]
  - Diarrhoea [Recovered/Resolved]
  - Hypotension [Recovered/Resolved]
  - Mutism [Recovered/Resolved]
  - Abnormal loss of weight [Recovered/Resolved]
  - Loss of personal independence in daily activities [Recovered/Resolved]
  - Walking disability [Recovered/Resolved]
  - Multiple drug therapy [Recovered/Resolved]
  - Weight decreased [Recovered/Resolved]
  - Off label use [Unknown]
  - Hypersomnia [Recovered/Resolved]
  - Sarcopenia [Recovered/Resolved]
  - Product use issue [Unknown]
  - Mobility decreased [Recovering/Resolving]
